FAERS Safety Report 14800193 (Version 2)
Quarter: 2018Q2

REPORT INFORMATION
  Report Type: Spontaneous
  Country: DE (occurrence: DE)
  Receive Date: 20180424
  Receipt Date: 20180503
  Transmission Date: 20180711
  Serious: Yes (Other)
  Sender: FDA-Public Use
  Company Number: DE-BAYER-2018-077879

PATIENT
  Age: 58 Year
  Sex: Female
  Weight: 95 kg

DRUGS (3)
  1. ULTRAGRAF [Suspect]
     Active Substance: IOPROMIDE
     Indication: PULMONARY EMBOLISM
  2. ULTRAGRAF [Suspect]
     Active Substance: IOPROMIDE
     Indication: NEOPLASM MALIGNANT
  3. ULTRAGRAF [Suspect]
     Active Substance: IOPROMIDE
     Indication: SCAN WITH CONTRAST
     Dosage: 90 ML, ONCE
     Route: 042
     Dates: start: 20180412, end: 20180412

REACTIONS (3)
  - Hypersensitivity [Recovered/Resolved]
  - Abdominal pain [Recovered/Resolved]
  - Cyanosis [Recovered/Resolved]

NARRATIVE: CASE EVENT DATE: 20180412
